FAERS Safety Report 21056110 (Version 1)
Quarter: 2022Q3

REPORT INFORMATION
  Report Type: Other
  Country: JP (occurrence: JP)
  Receive Date: 20220708
  Receipt Date: 20220708
  Transmission Date: 20221026
  Serious: Yes (Hospitalization)
  Sender: FDA-Public Use
  Company Number: JP-CHUGAI-2022010727

PATIENT
  Age: 79 Year
  Sex: Male
  Weight: 68.3 kg

DRUGS (12)
  1. ATEZOLIZUMAB [Suspect]
     Active Substance: ATEZOLIZUMAB
     Indication: Lung adenocarcinoma
     Dosage: 1200 MILLIGRAM
     Route: 041
     Dates: start: 20210709
  2. ATEZOLIZUMAB [Suspect]
     Active Substance: ATEZOLIZUMAB
     Dosage: 1200 MILLIGRAM, ONCE/3WEEKS
     Route: 041
     Dates: start: 20210803, end: 20210914
  3. ATEZOLIZUMAB [Suspect]
     Active Substance: ATEZOLIZUMAB
     Dosage: 1200 MILLIGRAM, ONCE/3WEEKS
     Route: 041
     Dates: start: 20211005, end: 20211207
  4. ATEZOLIZUMAB [Suspect]
     Active Substance: ATEZOLIZUMAB
     Dosage: 1200 MILLIGRAM, SINGLE
     Route: 041
     Dates: start: 20220208, end: 20220208
  5. ATEZOLIZUMAB [Suspect]
     Active Substance: ATEZOLIZUMAB
     Dosage: 1200 MILLIGRAM
     Route: 041
     Dates: end: 20220322
  6. CARBOPLATIN [Suspect]
     Active Substance: CARBOPLATIN
     Indication: Lung adenocarcinoma
     Dosage: 420 MILLIGRAM
     Route: 041
     Dates: start: 20210709
  7. CARBOPLATIN [Suspect]
     Active Substance: CARBOPLATIN
     Dosage: 420 MILLIGRAM, ONCE/3WEEKS
     Route: 041
     Dates: start: 20210803, end: 20210914
  8. PEMETREXED [Suspect]
     Active Substance: PEMETREXED
     Indication: Lung adenocarcinoma
     Dosage: 700 MILLIGRAM
     Route: 041
     Dates: start: 20210709
  9. PEMETREXED [Suspect]
     Active Substance: PEMETREXED
     Dosage: 700 MILLIGRAM, ONCE/3WEEKS
     Route: 041
     Dates: start: 20210803, end: 20210914
  10. PEMETREXED [Suspect]
     Active Substance: PEMETREXED
     Dosage: 700 MILLIGRAM, ONCE/3WEEKS
     Route: 041
     Dates: start: 20211005, end: 20211207
  11. PEMETREXED [Suspect]
     Active Substance: PEMETREXED
     Dosage: 700 MILLIGRAM, SINGLE
     Route: 041
     Dates: start: 20220208
  12. PEMETREXED [Suspect]
     Active Substance: PEMETREXED
     Dosage: 700 MILLIGRAM
     Route: 041
     Dates: end: 20220322

REACTIONS (7)
  - Colitis [Recovered/Resolved]
  - Renal impairment [Recovered/Resolved]
  - Anaemia [Not Recovered/Not Resolved]
  - Decreased appetite [Not Recovered/Not Resolved]
  - Constipation [Recovered/Resolved]
  - Oedema peripheral [Recovered/Resolved]
  - Weight decreased [Not Recovered/Not Resolved]

NARRATIVE: CASE EVENT DATE: 20210713
